FAERS Safety Report 12915711 (Version 1)
Quarter: 2016Q4

REPORT INFORMATION
  Report Type: Spontaneous
  Country: US (occurrence: US)
  Receive Date: 20161106
  Receipt Date: 20161106
  Transmission Date: 20170207
  Serious: Yes (Hospitalization)
  Sender: FDA-Public Use
  Company Number: PHEH2016US028789

PATIENT
  Age: 35 Year
  Sex: Female

DRUGS (1)
  1. JADENU [Suspect]
     Active Substance: DEFERASIROX
     Indication: SICKLE CELL ANAEMIA WITH CRISIS
     Dosage: 540 MG, QD
     Route: 048
     Dates: start: 20160501

REACTIONS (1)
  - Sickle cell anaemia [Unknown]

NARRATIVE: CASE EVENT DATE: 20161028
